FAERS Safety Report 15273327 (Version 2)
Quarter: 2018Q3

REPORT INFORMATION
  Report Type: Spontaneous
  Country: US (occurrence: US)
  Receive Date: 20180813
  Receipt Date: 20180924
  Transmission Date: 20181010
  Serious: Yes (Other)
  Sender: FDA-Public Use
  Company Number: US-PRINSTON PHARMACEUTICAL INC.-2018PRN00767

PATIENT
  Age: 65 Year
  Sex: Female
  Weight: 81.63 kg

DRUGS (8)
  1. FEXOFENADINE [Concomitant]
     Active Substance: FEXOFENADINE\FEXOFENADINE HYDROCHLORIDE
  2. UNSPECIFIED MULTIVITAMIN [Concomitant]
  3. CALCIUM [Concomitant]
     Active Substance: CALCIUM
  4. AMLODIPINE [Concomitant]
     Active Substance: AMLODIPINE BESYLATE
     Dosage: UNK
     Dates: end: 20180727
  5. AMBIEN [Concomitant]
     Active Substance: ZOLPIDEM TARTRATE
     Dosage: 0.5 TABLETS, 1X/DAY AT NGIHT
  6. IBUPROFEN. [Concomitant]
     Active Substance: IBUPROFEN
  7. UNSPECIFIED EYE VITAMIN [Concomitant]
  8. VALSARTAN. [Suspect]
     Active Substance: VALSARTAN
     Indication: BLOOD PRESSURE ABNORMAL
     Dosage: 320 MG, 1X/DAY
     Route: 048
     Dates: start: 2009, end: 20180727

REACTIONS (1)
  - Angioedema [Recovered/Resolved]

NARRATIVE: CASE EVENT DATE: 201806
